FAERS Safety Report 7744824-1 (Version None)
Quarter: 2011Q3

REPORT INFORMATION
  Report Type: 
  Country: None (occurrence: None)
  Receive Date: 20110912
  Receipt Date: 20110902
  Transmission Date: 20111222
  Serious: Yes (Other)
  Sender: FDA-Public Use
  Company Number: BE-BAXTER-2011BH028287

PATIENT
  Age: 55 Year
  Sex: Male

DRUGS (4)
  1. EXTRANEAL [Suspect]
     Route: 033
     Dates: start: 20100118
  2. EXTRANEAL [Suspect]
     Indication: PERITONEAL DIALYSIS
     Route: 033
     Dates: start: 20100118
  3. PHYSIOSOL IN PLASTIC CONTAINER [Suspect]
     Indication: PERITONEAL DIALYSIS
     Route: 033
     Dates: start: 20100118
  4. PHYSIOSOL IN PLASTIC CONTAINER [Suspect]
     Route: 033
     Dates: start: 20100118

REACTIONS (1)
  - PERITONEAL EFFLUENT ABNORMAL [None]
